FAERS Safety Report 17820383 (Version 1)
Quarter: 2020Q2

REPORT INFORMATION
  Report Type: Spontaneous
  Country: NL (occurrence: NL)
  Receive Date: 20200525
  Receipt Date: 20200525
  Transmission Date: 20200714
  Serious: Yes (Death)
  Sender: FDA-Public Use
  Company Number: NL-TERSERA THERAPEUTICS LLC-2020TRS001339

PATIENT

DRUGS (1)
  1. ZOLADEX [Suspect]
     Active Substance: GOSERELIN ACETATE
     Indication: PROSTATE CANCER
     Dosage: 10.8 IMPLANT ROD 1 X PER 3 MONTHS
     Route: 058
     Dates: start: 20050926, end: 20200224

REACTIONS (1)
  - Death [Fatal]

NARRATIVE: CASE EVENT DATE: 20200316
